FAERS Safety Report 4589547-5 (Version None)
Quarter: 2005Q1

REPORT INFORMATION
  Report Type: 
  Country: None (occurrence: None)
  Receive Date: 20050217
  Receipt Date: 20041130
  Transmission Date: 20050727
  Serious: Yes (Hospitalization)
  Sender: FDA-Public Use
  Company Number: T04-AUT-07291-01

PATIENT
  Age: 76 Year
  Sex: Female

DRUGS (4)
  1. MEMANTINE HCL [Suspect]
     Indication: DEMENTIA ALZHEIMER'S TYPE
     Dosage: 10 MG QD PO
     Route: 048
     Dates: start: 20040526
  2. GALANTAMINE [Concomitant]
  3. MODASOMIL [Concomitant]
  4. IXEL (MILNACIPRAN) [Concomitant]

REACTIONS (1)
  - THROMBOSIS [None]
